FAERS Safety Report 6535030-7 (Version None)
Quarter: 2010Q1

REPORT INFORMATION
  Report Type: 
  Country: None (occurrence: None)
  Receive Date: 20100111
  Receipt Date: 20100111
  Transmission Date: 20100710
  Serious: No
  Sender: FDA-Public Use
  Company Number: None

PATIENT
  Age: 29 Year
  Sex: Male
  Weight: 68.5 kg

DRUGS (2)
  1. RIFAMPIN [Suspect]
     Indication: CELLULITIS
     Dosage: 300 MG BID PO
     Route: 048
     Dates: start: 20091120, end: 20091127
  2. DOXYCYCLINE [Suspect]
     Dosage: 100 MG BID PO
     Route: 048
     Dates: start: 20091120, end: 20091127

REACTIONS (2)
  - DRUG HYPERSENSITIVITY [None]
  - ERYTHEMA MULTIFORME [None]
